FAERS Safety Report 10008943 (Version 1)
Quarter: 2014Q1

REPORT INFORMATION
  Report Type: Spontaneous
  Country: US (occurrence: US)
  Receive Date: 20140313
  Receipt Date: 20140313
  Transmission Date: 20141002
  Serious: No
  Sender: FDA-Public Use
  Company Number: US-INCYTE CORPORATION-2012IN001292

PATIENT
  Age: 33 Year
  Sex: Female

DRUGS (5)
  1. JAKAFI [Suspect]
     Indication: MYELOPROLIFERATIVE DISORDER
     Dosage: 10 MG, BID
     Route: 048
  2. FOLIC ACID [Concomitant]
  3. BIOTIN [Concomitant]
  4. IMITREX [Concomitant]
  5. PERCOCET [Concomitant]

REACTIONS (1)
  - Alopecia [Not Recovered/Not Resolved]
